FAERS Safety Report 7122341-X (Version None)
Quarter: 2010Q4

REPORT INFORMATION
  Report Type: 
  Country: None (occurrence: None)
  Receive Date: 20101124
  Receipt Date: 20101111
  Transmission Date: 20110411
  Serious: Yes (Hospitalization, Other)
  Sender: FDA-Public Use
  Company Number: PHHY2010KR76605

PATIENT
  Age: 50 Year
  Sex: Male

DRUGS (1)
  1. GLEEVEC [Suspect]
     Indication: METASTASES TO LIVER
     Dosage: 400MG (04 TABLETS /DAY)
     Route: 048

REACTIONS (3)
  - CARDIAC DISORDER [None]
  - OSTEONECROSIS [None]
  - SURGERY [None]
